FAERS Safety Report 6441200-9 (Version None)
Quarter: 2009Q4

REPORT INFORMATION
  Report Type: 
  Country: None (occurrence: None)
  Receive Date: 20091113
  Receipt Date: 20091113
  Transmission Date: 20100525
  Serious: Yes (Other)
  Sender: FDA-Public Use
  Company Number: None

PATIENT
  Age: 24 Year
  Sex: Female
  Weight: 49.8957 kg

DRUGS (2)
  1. SUBOXONE [Suspect]
     Dosage: 2 1/2 DAILY WHEN NEEDED SL
     Route: 060
     Dates: start: 20090216, end: 20090323
  2. SUBOXONE [Suspect]
     Dosage: 2 1/2 DAILY WHEN NEEDED SL
     Route: 060
     Dates: start: 20090323, end: 20090423

REACTIONS (1)
  - NAUSEA [None]
